FAERS Safety Report 6567701-0 (Version None)
Quarter: 2010Q1

REPORT INFORMATION
  Report Type: 
  Country: None (occurrence: None)
  Receive Date: 20100203
  Receipt Date: 20100126
  Transmission Date: 20100710
  Serious: Yes (Other)
  Sender: FDA-Public Use
  Company Number: US-PFIZER INC-2010011510

PATIENT
  Sex: Male
  Weight: 95.238 kg

DRUGS (3)
  1. CHANTIX [Suspect]
     Indication: SMOKING CESSATION THERAPY
     Dosage: 0.5 MG, 1X/DAY
     Route: 048
     Dates: start: 20100112
  2. CHANTIX [Suspect]
     Dosage: 1 MG, 2X/DAY
     Dates: end: 20100126
  3. COUMADIN [Concomitant]
     Indication: THROMBOSIS
     Dosage: 5 MG, 1X/DAY
     Route: 048

REACTIONS (6)
  - AGITATION [None]
  - DEPRESSION [None]
  - HEAD BANGING [None]
  - MENTAL DISORDER [None]
  - MOOD ALTERED [None]
  - PARANOIA [None]
